FAERS Safety Report 19377177 (Version 4)
Quarter: 2021Q4

REPORT INFORMATION
  Report Type: Spontaneous
  Country: JP (occurrence: JP)
  Receive Date: 20210604
  Receipt Date: 20211117
  Transmission Date: 20220303
  Serious: Yes (Life-Threatening, Hospitalization, Disabling, Other)
  Sender: FDA-Public Use
  Company Number: JP-PFIZER INC-2021603692

PATIENT
  Age: 50 Year
  Sex: Male
  Weight: 54.8 kg

DRUGS (1)
  1. INFLIXIMAB [Suspect]
     Active Substance: INFLIXIMAB
     Indication: Crohn^s disease
     Dosage: 400 MG, ONCE EVERY 8 WEEKS
     Route: 042
     Dates: start: 20190509, end: 20210311

REACTIONS (1)
  - Anal cancer stage III [Recovering/Resolving]

NARRATIVE: CASE EVENT DATE: 20210311
